FAERS Safety Report 8066227-5 (Version None)
Quarter: 2012Q1

REPORT INFORMATION
  Report Type: 
  Country: None (occurrence: None)
  Receive Date: 20120124
  Receipt Date: 20110106
  Transmission Date: 20120608
  Serious: Yes (Death)
  Sender: FDA-Public Use
  Company Number: US-JNJFOC-20110101766

PATIENT
  Age: 27 Year
  Sex: Male

DRUGS (3)
  1. PARACETAMOL/DIPHENHYDRAMINE [Suspect]
     Indication: PRODUCT USED FOR UNKNOWN INDICATION
  2. ACETAMINOPHEN AND HYDROCODONE BITARTRATE [Suspect]
     Indication: SUICIDE ATTEMPT
  3. ACETAMINOPHEN WITH PROPOXYPHENE HCL TAB [Suspect]
     Indication: SUICIDE ATTEMPT

REACTIONS (1)
  - TOXICITY TO VARIOUS AGENTS [None]
